FAERS Safety Report 21336170 (Version 1)
Quarter: 2022Q3

REPORT INFORMATION
  Report Type: Report from Study
  Country: BR (occurrence: BR)
  Receive Date: 20220915
  Receipt Date: 20220915
  Transmission Date: 20221027
  Serious: Yes (Other)
  Sender: FDA-Public Use
  Company Number: BR-JNJFOC-20220726103

PATIENT
  Age: 42 Year
  Sex: Male
  Weight: 82 kg

DRUGS (1)
  1. INFLIXIMAB [Suspect]
     Active Substance: INFLIXIMAB
     Indication: Ankylosing spondylitis
     Dosage: 2 IN 2 MONTHS, UNABLE TO INFORM THE DOSE.
     Route: 041
     Dates: start: 20200924

REACTIONS (1)
  - Influenza [Unknown]
